FAERS Safety Report 5858716-6 (Version None)
Quarter: 2008Q3

REPORT INFORMATION
  Report Type: 
  Country: None (occurrence: None)
  Receive Date: 20080826
  Receipt Date: 20080813
  Transmission Date: 20090109
  Serious: No
  Sender: FDA-Public Use
  Company Number: US-BOEHRINGER INGELHEIM GMBH, GERMANY-2008-BP-12790BP

PATIENT
  Age: 81 Year
  Sex: Female

DRUGS (13)
  1. SPIRIVA [Suspect]
     Indication: CHRONIC OBSTRUCTIVE PULMONARY DISEASE
     Dates: start: 20060101
  2. SPIRIVA [Suspect]
     Indication: EMPHYSEMA
  3. ALBUTEROL [Concomitant]
     Indication: EMPHYSEMA
     Route: 055
     Dates: start: 20050101
  4. PRESERVISION [Concomitant]
     Indication: MACULAR DEGENERATION
     Route: 048
     Dates: start: 20060101
  5. NORVASC [Concomitant]
     Indication: HYPERTENSION
     Route: 048
     Dates: start: 20040101
  6. TRIAMTERENE/HTCZ [Concomitant]
     Indication: DIURETIC THERAPY
     Route: 048
     Dates: start: 20060101
  7. LEVOTHYROXINE [Concomitant]
     Indication: HYPOTHYROIDISM
     Route: 048
     Dates: start: 19620101
  8. ASPIRIN [Concomitant]
     Indication: ARTHRITIS
     Route: 048
     Dates: start: 20060101
  9. SPIRONOLACTONE [Concomitant]
     Indication: HYPERTENSION
     Route: 048
     Dates: start: 20060101
  10. BENZONATATE [Concomitant]
     Indication: COUGH
     Route: 048
     Dates: start: 19880101
  11. NEXIUM [Concomitant]
     Indication: COUGH
     Dates: start: 20060101
  12. AMITRIPTYLINE HCL [Concomitant]
     Indication: ARTHRITIS
     Dates: start: 19780101
  13. GLUCOSAMINE/CHONDROITIN [Concomitant]
     Indication: ARTHRITIS
     Dates: start: 20030101

REACTIONS (1)
  - VISION BLURRED [None]
